FAERS Safety Report 11689939 (Version 2)
Quarter: 2015Q4

REPORT INFORMATION
  Report Type: Spontaneous
  Country: US (occurrence: US)
  Receive Date: 20151102
  Receipt Date: 20151201
  Transmission Date: 20160304
  Serious: No
  Sender: FDA-Public Use
  Company Number: US-GLAXOSMITHKLINE-US2015148959

PATIENT
  Age: 45 Year
  Sex: Male
  Weight: 115.19 kg

DRUGS (1)
  1. TANZEUM [Suspect]
     Active Substance: ALBIGLUTIDE
     Indication: HYPERGLYCAEMIA
     Dosage: 30 MG, WE
     Route: 058
     Dates: start: 201509

REACTIONS (1)
  - Injection site rash [Recovered/Resolved]

NARRATIVE: CASE EVENT DATE: 20150825
